FAERS Safety Report 5123419-2 (Version None)
Quarter: 2006Q4

REPORT INFORMATION
  Report Type: 
  Country: None (occurrence: None)
  Receive Date: 20061005
  Receipt Date: 20060922
  Transmission Date: 20070319
  Serious: Yes (Other)
  Sender: FDA-Public Use
  Company Number: 2006117159

PATIENT
  Age: 60 Year
  Sex: Female

DRUGS (1)
  1. LYRICA [Suspect]
     Indication: NEURALGIA
     Dosage: 150 MG (1 D)
     Dates: start: 20060101, end: 20060901

REACTIONS (3)
  - DIZZINESS [None]
  - FALL [None]
  - TRAUMATIC SHOCK [None]
